FAERS Safety Report 24086286 (Version 1)
Quarter: 2024Q3

REPORT INFORMATION
  Report Type: Spontaneous
  Country: DE (occurrence: DE)
  Receive Date: 20240712
  Receipt Date: 20240712
  Transmission Date: 20241017
  Serious: Yes (Hospitalization)
  Sender: TEVA
  Company Number: DE-TEVA-VS-3217364

PATIENT
  Sex: Male

DRUGS (5)
  1. QUETIAPINE [Suspect]
     Active Substance: QUETIAPINE
     Indication: Product used for unknown indication
     Dosage: RATIOPHARM 300 MG RETARDTABLETTEN
     Route: 065
  2. QUETIAPINE [Suspect]
     Active Substance: QUETIAPINE
     Indication: Product used for unknown indication
     Route: 065
  3. QUETIAPINE [Suspect]
     Active Substance: QUETIAPINE
     Indication: Product used for unknown indication
     Dosage: RATIOPHARM 200 MG RETARDTABLETTEN
     Route: 065
  4. HEXACHLOROPHENE [Suspect]
     Active Substance: HEXACHLOROPHENE
     Indication: Product used for unknown indication
     Route: 065
  5. BENZOCAINE [Suspect]
     Active Substance: BENZOCAINE
     Indication: Product used for unknown indication
     Route: 065

REACTIONS (6)
  - Tachycardia [Recovering/Resolving]
  - Adverse event [Recovering/Resolving]
  - Insomnia [Unknown]
  - Sleep apnoea syndrome [Recovering/Resolving]
  - Treatment failure [Recovering/Resolving]
  - Arteriospasm coronary [Recovering/Resolving]
